FAERS Safety Report 9929556 (Version 1)
Quarter: 2014Q1

REPORT INFORMATION
  Report Type: Spontaneous
  Country: US (occurrence: US)
  Receive Date: 20140227
  Receipt Date: 20140227
  Transmission Date: 20141002
  Serious: Yes (Other)
  Sender: FDA-Public Use
  Company Number: US-TEVA-464410USA

PATIENT
  Age: 35 Year
  Sex: Female
  Weight: 74.46 kg

DRUGS (2)
  1. LAMOTRIGINE [Suspect]
     Indication: AFFECTIVE DISORDER
     Dosage: 100MG AND 150MG
     Dates: start: 2013
  2. TRI-SPRINTEC [Concomitant]
     Dates: start: 201309

REACTIONS (3)
  - Cardiac flutter [Not Recovered/Not Resolved]
  - Electrocardiogram abnormal [Not Recovered/Not Resolved]
  - Electrocardiogram T wave abnormal [Not Recovered/Not Resolved]
